FAERS Safety Report 17390408 (Version 1)
Quarter: 2020Q1

REPORT INFORMATION
  Report Type: Spontaneous
  Country: DE (occurrence: DE)
  Receive Date: 20200207
  Receipt Date: 20200207
  Transmission Date: 20200409
  Serious: Yes (Hospitalization)
  Sender: FDA-Public Use
  Company Number: NVSC2020DE025628

PATIENT
  Sex: Female

DRUGS (18)
  1. FENTANYL. [Concomitant]
     Active Substance: FENTANYL
     Indication: ANALGESIC THERAPY
     Dosage: 50 UG (LAST CHANGE ON 26 JUL 2018 TO EVERY THREE DAYS)
     Route: 062
  2. PANTOPRAZOLE [Concomitant]
     Active Substance: PANTOPRAZOLE
     Indication: PROPHYLAXIS
     Dosage: 40 MG, QD  (0-0-1)
     Route: 048
  3. CYCLOPHOSPHAMIDE. [Suspect]
     Active Substance: CYCLOPHOSPHAMIDE
     Indication: B-CELL LYMPHOMA
     Dosage: 1050 MG, QD
     Route: 042
     Dates: start: 20180312, end: 20180312
  4. PREDNISONE. [Suspect]
     Active Substance: PREDNISONE
     Indication: B-CELL LYMPHOMA
     Dosage: 100 MG, QD (5 DAYS)
     Route: 048
     Dates: start: 20180312, end: 20180316
  5. DOXORUBICIN [Suspect]
     Active Substance: DOXORUBICIN
     Indication: B-CELL LYMPHOMA
     Dosage: 70 MG, QD
     Route: 042
     Dates: start: 20180312, end: 20180312
  6. COLECALCIFEROL [Concomitant]
     Active Substance: CHOLECALCIFEROL
     Indication: HYPOKALAEMIA
     Dosage: 20000 IU, QW
     Route: 048
  7. CINNARIZIN DIMENHYDRINAT [Concomitant]
     Indication: VERTIGO
     Dosage: 1 DF, QD (CINNARIZINE-20 MG; DIMENHYDRINATE-40 MG) (1-0-0)
     Route: 048
  8. BROMAZEPAM [Concomitant]
     Active Substance: BROMAZEPAM
     Indication: INSOMNIA
     Dosage: 6 MG (0 -0-0-1/2)
     Route: 048
  9. VINCRISTINE [Suspect]
     Active Substance: VINCRISTINE
     Indication: B-CELL LYMPHOMA
     Dosage: 3.21 MG, QD
     Route: 042
     Dates: start: 20180119, end: 20180119
  10. FUROSEMIDE. [Concomitant]
     Active Substance: FUROSEMIDE
     Indication: CARDIAC FAILURE
     Dosage: 40 MG (1/4-1/4-0)
     Route: 048
  11. PEGFILGRASTIM [Suspect]
     Active Substance: PEGFILGRASTIM
     Indication: B-CELL LYMPHOMA
     Dosage: 6 MG, QD
     Route: 058
     Dates: start: 20180315, end: 20180315
  12. MORPHINE [Concomitant]
     Active Substance: MORPHINE
     Indication: ANALGESIC THERAPY
     Dosage: 20 MG, PRN (MAXIMUM 6X DAILY)
     Route: 048
  13. ENOXAPARIN SODIUM. [Concomitant]
     Active Substance: ENOXAPARIN SODIUM
     Indication: PROPHYLAXIS
     Dosage: 6000 IU, BID (1-0-1)
     Route: 058
  14. MIRTAZAPINE. [Concomitant]
     Active Substance: MIRTAZAPINE
     Indication: INSOMNIA
     Dosage: 15 MG (0-0-0-1/2)
     Route: 048
  15. KALIUMCHLORIDE [Concomitant]
     Indication: DRUG THERAPY
     Dosage: 8 MMOL, BID (1-0-1)
     Route: 048
  16. RITUXIMAB. [Suspect]
     Active Substance: RITUXIMAB
     Indication: B-CELL LYMPHOMA
     Dosage: 700 MG, QD
     Route: 042
     Dates: start: 20180409, end: 20180409
  17. CALCIUM [Concomitant]
     Active Substance: CALCIUM
     Indication: DRUG THERAPY
     Dosage: 500 MG, QD
     Route: 048
  18. NEBIVOLOL. [Concomitant]
     Active Substance: NEBIVOLOL
     Indication: HYPERTENSION
     Dosage: 5 MG, (1/2- 0- 1/2)
     Route: 048

REACTIONS (1)
  - Decubitus ulcer [Not Recovered/Not Resolved]

NARRATIVE: CASE EVENT DATE: 20180723
